FAERS Safety Report 10663100 (Version 3)
Quarter: 2015Q1

REPORT INFORMATION
  Report Type: Report from Study
  Country: CA (occurrence: CA)
  Receive Date: 20141218
  Receipt Date: 20150130
  Transmission Date: 20150720
  Serious: Yes (Death, Hospitalization, Other)
  Sender: FDA-Public Use
  Company Number: CA-GILEAD-2014-0126859

PATIENT
  Age: 62 Year
  Sex: Female
  Weight: 30.39 kg

DRUGS (11)
  1. IDELALISIB [Suspect]
     Active Substance: IDELALISIB
     Indication: NON-HODGKIN^S LYMPHOMA UNSPECIFIED HISTOLOGY INDOLENT
     Dosage: 150 MG, BID
     Route: 048
     Dates: start: 20140409, end: 20141015
  2. OMEPRAZOLE. [Concomitant]
     Active Substance: OMEPRAZOLE
     Indication: DYSPEPSIA
     Dosage: UNK
     Dates: start: 20140926, end: 20141129
  3. CODEINE [Concomitant]
     Active Substance: CODEINE
     Indication: ABDOMINAL PAIN
     Dosage: UNK
     Dates: start: 201410, end: 20141130
  4. SENOKOT [Concomitant]
     Active Substance: SENNOSIDES
     Indication: CONSTIPATION
     Dosage: UNK
     Dates: start: 201410
  5. ZOPICLONE [Concomitant]
     Active Substance: ZOPICLONE
     Indication: SEDATION
     Dosage: UNK
     Dates: start: 201410
  6. ALENDRONATE [Concomitant]
     Active Substance: ALENDRONATE SODIUM
     Indication: OSTEOPOROSIS
     Dosage: UNK
     Dates: start: 2011
  7. SLOW K [Concomitant]
     Active Substance: POTASSIUM CHLORIDE
     Indication: HYPOKALAEMIA
     Dosage: UNK
     Dates: start: 201410
  8. BENDAMUSTINE [Suspect]
     Active Substance: BENDAMUSTINE
     Indication: NON-HODGKIN^S LYMPHOMA UNSPECIFIED HISTOLOGY INDOLENT
     Dosage: 126 MG, CYCLICAL
     Route: 042
     Dates: start: 20140409, end: 20140827
  9. RITUXIMAB [Suspect]
     Active Substance: RITUXIMAB
     Indication: NON-HODGKIN^S LYMPHOMA UNSPECIFIED HISTOLOGY INDOLENT
     Dosage: 525 MG, CYCLICAL
     Route: 042
     Dates: start: 20140409, end: 20140826
  10. ACYCLOVIR                          /00587301/ [Concomitant]
     Active Substance: ACYCLOVIR
     Indication: EYE INFECTION
     Dosage: UNK
     Dates: start: 20140915, end: 20150121
  11. FOLIC ACID. [Concomitant]
     Active Substance: FOLIC ACID
     Dosage: UNK
     Dates: start: 201410

REACTIONS (2)
  - Pneumonia [Fatal]
  - Colitis ischaemic [Not Recovered/Not Resolved]

NARRATIVE: CASE EVENT DATE: 20141130
